FAERS Safety Report 26194345 (Version 1)
Quarter: 2025Q4

REPORT INFORMATION
  Report Type: Report from Study
  Country: JP (occurrence: JP)
  Receive Date: 20251224
  Receipt Date: 20251224
  Transmission Date: 20260118
  Serious: Yes (Other)
  Sender: ROCHE
  Company Number: JP-ROCHE-10000451980

PATIENT

DRUGS (14)
  1. ATEZOLIZUMAB [Interacting]
     Active Substance: ATEZOLIZUMAB
     Indication: Cancer pain
  2. MORPHINE [Interacting]
     Active Substance: MORPHINE
     Indication: Cancer pain
  3. OXYCODONE [Interacting]
     Active Substance: OXYCODONE
     Indication: Cancer pain
  4. FENTANYL [Interacting]
     Active Substance: FENTANYL
     Indication: Cancer pain
     Route: 062
  5. METHADONE [Interacting]
     Active Substance: METHADONE HYDROCHLORIDE
     Indication: Cancer pain
  6. HYDROMORPHONE [Interacting]
     Active Substance: HYDROMORPHONE
     Indication: Cancer pain
  7. TAPENTADOL [Interacting]
     Active Substance: TAPENTADOL
     Indication: Cancer pain
  8. NIVOLUMAB [Interacting]
     Active Substance: NIVOLUMAB
     Indication: Cancer pain
  9. PEMBROLIZUMAB [Interacting]
     Active Substance: PEMBROLIZUMAB
     Indication: Cancer pain
  10. CEMIPLIMAB [Interacting]
     Active Substance: CEMIPLIMAB
     Indication: Cancer pain
  11. IPILIMUMAB [Interacting]
     Active Substance: IPILIMUMAB
     Indication: Cancer pain
  12. TREMELIMUMAB [Interacting]
     Active Substance: TREMELIMUMAB
     Indication: Cancer pain
  13. DURVALUMAB [Interacting]
     Active Substance: DURVALUMAB
     Indication: Cancer pain
  14. AVELUMAB [Interacting]
     Active Substance: AVELUMAB
     Indication: Cancer pain

REACTIONS (6)
  - Drug interaction [Unknown]
  - Constipation [Unknown]
  - Nausea [Unknown]
  - Vomiting [Unknown]
  - Dysuria [Unknown]
  - Urinary retention [Unknown]
